FAERS Safety Report 4807156-7 (Version None)
Quarter: 2005Q4

REPORT INFORMATION
  Report Type: 
  Country: None (occurrence: None)
  Receive Date: 20051019
  Receipt Date: 20051006
  Transmission Date: 20060501
  Serious: Yes (Other)
  Sender: FDA-Public Use
  Company Number: 2005102471

PATIENT
  Age: 80 Year
  Sex: Male

DRUGS (6)
  1. LIPITOR [Suspect]
     Indication: HYPERLIPIDAEMIA
     Dosage: (40 MG,), ORAL
     Route: 048
     Dates: start: 20020516, end: 20050324
  2. ACETYLSALICYLIC ACID SRT [Concomitant]
  3. ATENOLOL [Concomitant]
  4. CLOPIDOGREL BISULFATE [Concomitant]
  5. GLYCERYL TRINITRATE (GLYCERYL TRINITRATE) [Concomitant]
  6. OMEPRAZOLE [Concomitant]

REACTIONS (15)
  - ARTHROPATHY [None]
  - CHEST PAIN [None]
  - CONDITION AGGRAVATED [None]
  - CONTUSION [None]
  - CORONARY ARTERIAL STENT INSERTION [None]
  - EPICONDYLITIS [None]
  - EXERCISE TEST ABNORMAL [None]
  - INTESTINAL POLYP [None]
  - JOINT SWELLING [None]
  - MUSCLE ATROPHY [None]
  - MYOCARDIAL ISCHAEMIA [None]
  - NECK PAIN [None]
  - OEDEMA PERIPHERAL [None]
  - OSTEOARTHRITIS [None]
  - PAIN IN EXTREMITY [None]
